FAERS Safety Report 9958946 (Version 1)
Quarter: 2014Q1

REPORT INFORMATION
  Report Type: Spontaneous
  Country: US (occurrence: US)
  Receive Date: 20140305
  Receipt Date: 20140305
  Transmission Date: 20141002
  Serious: No
  Sender: FDA-Public Use
  Company Number: US-ABBVIE-13P-163-1102418-00

PATIENT
  Age: 38 Year
  Sex: Male
  Weight: 89.89 kg

DRUGS (4)
  1. HUMIRA [Suspect]
     Indication: ANKYLOSING SPONDYLITIS
     Dates: start: 20130515
  2. KLONOPIN [Concomitant]
     Indication: ANXIETY
     Dates: start: 1995
  3. LORTAB [Concomitant]
     Indication: INTERVERTEBRAL DISC DEGENERATION
  4. FENTANYL [Concomitant]
     Indication: INTERVERTEBRAL DISC DEGENERATION

REACTIONS (3)
  - Anxiety [Recovered/Resolved]
  - Hot flush [Recovered/Resolved]
  - Rash [Recovered/Resolved]
